FAERS Safety Report 5052021-6 (Version None)
Quarter: 2006Q3

REPORT INFORMATION
  Report Type: 
  Country: None (occurrence: None)
  Receive Date: 20060711
  Receipt Date: 20060619
  Transmission Date: 20061208
  Serious: Yes (Other)
  Sender: FDA-Public Use
  Company Number: FR200606004037

PATIENT
  Age: 66 Year
  Sex: Male

DRUGS (2)
  1. HUMALOG [Suspect]
     Indication: DIABETES MELLITUS INSULIN-DEPENDENT
     Dosage: 3 IU, 3/D, SUBCUTANEOUS
     Route: 058
     Dates: start: 20041101
  2. LANTUS [Concomitant]

REACTIONS (1)
  - POLYNEUROPATHY IDIOPATHIC PROGRESSIVE [None]
